FAERS Safety Report 24291759 (Version 1)
Quarter: 2024Q3

REPORT INFORMATION
  Report Type: Spontaneous
  Country: US (occurrence: US)
  Receive Date: 20240906
  Receipt Date: 20240906
  Transmission Date: 20241016
  Serious: No
  Sender: SUNOVION
  Company Number: US-SUMITOMO PHARMA SWITZERLAND GMBH-2024SPA001433

PATIENT

DRUGS (1)
  1. GEMTESA [Suspect]
     Active Substance: VIBEGRON
     Dosage: 75 MG, QD
     Route: 048

REACTIONS (8)
  - Meniscus injury [Unknown]
  - Muscular weakness [Unknown]
  - Fall [Unknown]
  - Dry mouth [Unknown]
  - Drooling [Unknown]
  - Feeling abnormal [Unknown]
  - Ataxia [Unknown]
  - Therapeutic product effect incomplete [Unknown]
